FAERS Safety Report 9154293 (Version 1)
Quarter: 2013Q1

REPORT INFORMATION
  Report Type: Spontaneous
  Country: US (occurrence: None)
  Receive Date: 20130308
  Receipt Date: 20130308
  Transmission Date: 20140127
  Serious: Yes (Other)
  Sender: FDA-Public Use
  Company Number: None

PATIENT
  Age: 86 Year
  Sex: Male
  Weight: 79.83 kg

DRUGS (7)
  1. STELARA [Suspect]
     Indication: PSORIASIS
     Dates: start: 20120921
  2. STELARAX [Suspect]
     Dates: start: 20121025
  3. AMBIEN [Concomitant]
  4. CLOBEASOL [Concomitant]
  5. DOXEPIN HCL [Concomitant]
  6. TRAMANOLONE ACTNIDE [Concomitant]
  7. CONENTRY [Concomitant]

REACTIONS (8)
  - Lymphocytosis [None]
  - Pruritus [None]
  - Swollen tongue [None]
  - Herpes zoster [None]
  - Leukocytosis [None]
  - Asthenia [None]
  - Drug intolerance [None]
  - Drug ineffective [None]
